FAERS Safety Report 8805020 (Version 5)
Quarter: 2013Q1

REPORT INFORMATION
  Report Type: Spontaneous
  Country: US (occurrence: US)
  Receive Date: 20120924
  Receipt Date: 20130214
  Transmission Date: 20140127
  Serious: Yes (Hospitalization, Other)
  Sender: FDA-Public Use
  Company Number: US-009507513-1203USA01683

PATIENT
  Sex: Female
  Weight: 52.61 kg

DRUGS (6)
  1. FOSAMAX [Suspect]
     Indication: OSTEOPENIA
     Dosage: 70 MG, QW
     Route: 048
     Dates: start: 200210
  2. ACTONEL [Suspect]
     Indication: OSTEOPENIA
     Dosage: 150 MG, QM
     Dates: start: 200612
  3. FERROUS SULFATE [Concomitant]
     Indication: BLOOD IRON ABNORMAL
     Dosage: UNK
     Dates: start: 2002
  4. SINGULAIR [Concomitant]
     Indication: ASTHMA
     Dosage: UNK
     Dates: start: 2002
  5. ALBUTEROL [Concomitant]
     Indication: ASTHMA
     Dosage: UNK
     Dates: start: 2002
  6. OCUVITE PRESERVISION [Concomitant]
     Indication: MACULAR DEGENERATION

REACTIONS (26)
  - Femur fracture [Recovered/Resolved]
  - Open reduction of fracture [Recovered/Resolved]
  - Cerebrovascular accident [Unknown]
  - Anaemia postoperative [Unknown]
  - Toxicity to various agents [Unknown]
  - Pneumonia [Unknown]
  - Fall [Unknown]
  - Transient ischaemic attack [Unknown]
  - Tremor [Unknown]
  - Arthritis [Unknown]
  - Fracture delayed union [Recovered/Resolved]
  - Hypothyroidism [Unknown]
  - Amnesia [Unknown]
  - Coronary artery disease [Unknown]
  - Hypertension [Unknown]
  - Deep vein thrombosis [Unknown]
  - Atrial fibrillation [Unknown]
  - Gastrointestinal haemorrhage [Unknown]
  - Emphysema [Unknown]
  - Osteoporosis [Unknown]
  - Vertebral wedging [Unknown]
  - Parkinson^s disease [Unknown]
  - Spinal compression fracture [Unknown]
  - Osteoarthritis [Unknown]
  - Back pain [Unknown]
  - Arthralgia [Unknown]
